FAERS Safety Report 13881890 (Version 3)
Quarter: 2017Q4

REPORT INFORMATION
  Report Type: Report from Study
  Country: ZA (occurrence: ZA)
  Receive Date: 20170818
  Receipt Date: 20171013
  Transmission Date: 20180320
  Serious: Yes (Death, Other)
  Sender: FDA-Public Use
  Company Number: ZA-AMGEN-ZAFSL2017125235

PATIENT
  Age: 69 Year
  Sex: Male

DRUGS (2)
  1. ARANESP [Suspect]
     Active Substance: DARBEPOETIN ALFA
     Indication: ANAEMIA
  2. ARANESP [Suspect]
     Active Substance: DARBEPOETIN ALFA
     Indication: CHRONIC KIDNEY DISEASE
     Dosage: 60 MCG, QWK
     Route: 058
     Dates: start: 201705, end: 201708

REACTIONS (1)
  - Death [Fatal]

NARRATIVE: CASE EVENT DATE: 201708
